FAERS Safety Report 17774156 (Version 1)
Quarter: 2020Q2

REPORT INFORMATION
  Report Type: Spontaneous
  Country: US (occurrence: US)
  Receive Date: 20200513
  Receipt Date: 20200513
  Transmission Date: 20200714
  Serious: No
  Sender: FDA-Public Use
  Company Number: US-GILEAD-2020-0465825

PATIENT
  Age: 69 Year
  Sex: Female

DRUGS (9)
  1. LIDOCAINE. [Concomitant]
     Active Substance: LIDOCAINE
  2. DESONIDE. [Concomitant]
     Active Substance: DESONIDE
  3. DIVALPREX [Concomitant]
  4. IBUPROFEN. [Concomitant]
     Active Substance: IBUPROFEN
  5. CLONAZEPAM. [Concomitant]
     Active Substance: CLONAZEPAM
  6. HARVONI [Suspect]
     Active Substance: LEDIPASVIR\SOFOSBUVIR
     Indication: CHRONIC HEPATITIS C
     Dosage: 1 DOSAGE FORM, QD
     Route: 048
     Dates: start: 20200422
  7. MOMETASONE FUROATE. [Concomitant]
     Active Substance: MOMETASONE FUROATE
  8. MONTELUKAST SODIUM. [Concomitant]
     Active Substance: MONTELUKAST SODIUM
  9. ERGOCALCIFEROL. [Concomitant]
     Active Substance: ERGOCALCIFEROL

REACTIONS (1)
  - Headache [Unknown]

NARRATIVE: CASE EVENT DATE: 202004
